FAERS Safety Report 9721565 (Version 2)
Quarter: 2014Q1

REPORT INFORMATION
  Report Type: Report from Study
  Country: BR (occurrence: BR)
  Receive Date: 20131130
  Receipt Date: 20140114
  Transmission Date: 20141002
  Serious: No
  Sender: FDA-Public Use
  Company Number: PHHY2013BR138631

PATIENT
  Sex: Female

DRUGS (8)
  1. EXELON PATCH [Suspect]
     Indication: DEMENTIA ALZHEIMER^S TYPE
     Dosage: 9.5 MG (PATCH 10 CM2), DAILY
     Route: 062
  2. ALOIS [Suspect]
     Dosage: 1 DF, DAILY (AT NIGHT)
  3. GLIMEPIRIDE [Concomitant]
     Dosage: UNK UKN, UNK
  4. METFORMIN [Concomitant]
     Dosage: UNK UKN, UNK
  5. CAPTOPRIL [Concomitant]
     Dosage: UNK UKN, UNK
  6. VASODIPINA [Concomitant]
     Dosage: UNK UKN, UNK
  7. AAS [Concomitant]
     Dosage: UNK UKN, UNK
  8. SIMVASTATIN [Concomitant]
     Dosage: UNK UKN, UNK

REACTIONS (3)
  - Diabetes mellitus inadequate control [Not Recovered/Not Resolved]
  - Memory impairment [Not Recovered/Not Resolved]
  - Drug ineffective [Unknown]
